FAERS Safety Report 16312401 (Version 1)
Quarter: 2019Q2

REPORT INFORMATION
  Report Type: Spontaneous
  Country: IT (occurrence: IT)
  Receive Date: 20190515
  Receipt Date: 20190515
  Transmission Date: 20190711
  Serious: Yes (Hospitalization, Other)
  Sender: FDA-Public Use
  Company Number: IT-TEVA-2019-IT-1049526

PATIENT
  Age: 79 Year
  Sex: Female

DRUGS (1)
  1. METHOTREXATE. [Suspect]
     Active Substance: METHOTREXATE
     Indication: RHEUMATOID ARTHRITIS
     Dosage: SHE WAS PRESCRIBED WITH 15 MG/WEEK OF METHOTREXATE. HOWEVER, SHE HAD MISINTERPRETED THE PRESCRIPT.
     Route: 065

REACTIONS (9)
  - Pancytopenia [Recovering/Resolving]
  - Subarachnoid haemorrhage [Unknown]
  - Cerebral haematoma [Unknown]
  - Blood folate decreased [Unknown]
  - Inappropriate schedule of product administration [Unknown]
  - Agranulocytosis [Recovering/Resolving]
  - Mucocutaneous ulceration [Recovering/Resolving]
  - Odynophagia [Unknown]
  - Toxicity to various agents [Recovering/Resolving]
